FAERS Safety Report 7023698-0 (Version None)
Quarter: 2010Q4

REPORT INFORMATION
  Report Type: 
  Country: None (occurrence: None)
  Receive Date: 20101001
  Receipt Date: 20100916
  Transmission Date: 20110411
  Serious: Yes (Hospitalization)
  Sender: FDA-Public Use
  Company Number: FR-MYLANLABS-2010S1017361

PATIENT
  Age: 13 Year
  Sex: Female
  Weight: 60 kg

DRUGS (2)
  1. DEXTROPROPOXYPHENE [Suspect]
     Route: 065
  2. TRAMADOL HCL [Suspect]
     Route: 065

REACTIONS (2)
  - DRUG SCREEN FALSE POSITIVE [None]
  - RESPIRATORY ACIDOSIS [None]
